FAERS Safety Report 7812183-1 (Version None)
Quarter: 2011Q4

REPORT INFORMATION
  Report Type: 
  Country: None (occurrence: None)
  Receive Date: 20111013
  Receipt Date: 20111006
  Transmission Date: 20120403
  Serious: Yes (Other)
  Sender: FDA-Public Use
  Company Number: US-B.I. PHARMACEUTICALS,INC./RIDGEFIELD-2011-BP-23568BP

PATIENT
  Age: 62 Year
  Sex: Male

DRUGS (16)
  1. INTELENCE [Concomitant]
     Indication: HIV TEST POSITIVE
  2. GLUMETZA [Concomitant]
     Indication: DIABETES MELLITUS
  3. CLINDAMYCIN [Concomitant]
     Indication: FACE AND MOUTH X-RAY ABNORMAL
  4. GLIMEPIRIDE [Concomitant]
     Indication: DIABETES MELLITUS
  5. CRESTOR [Concomitant]
     Indication: BLOOD CHOLESTEROL INCREASED
  6. VALTREX [Concomitant]
     Indication: HERPES SIMPLEX
  7. ISENTRESS [Concomitant]
     Indication: HIV TEST POSITIVE
  8. ACTOS [Concomitant]
     Indication: DIABETES MELLITUS
  9. LANTUS [Concomitant]
     Indication: DIABETES MELLITUS
  10. TOPROL-XL [Concomitant]
     Indication: HYPERTENSION
  11. EPIVIR [Concomitant]
     Indication: HIV TEST POSITIVE
  12. PRADAXA [Suspect]
     Indication: ATRIAL FIBRILLATION
     Dosage: 300 MG
     Route: 048
     Dates: start: 20110901
  13. PREZISTA [Concomitant]
     Indication: DIABETES MELLITUS
  14. DIGOXIN [Concomitant]
     Indication: ATRIAL FIBRILLATION
  15. NORVIR [Concomitant]
     Indication: HIV TEST POSITIVE
  16. DIOVAN [Concomitant]
     Indication: HYPERTENSION

REACTIONS (5)
  - FATIGUE [None]
  - ERUCTATION [None]
  - NAUSEA [None]
  - WHITE BLOOD CELL COUNT DECREASED [None]
  - ABDOMINAL PAIN UPPER [None]
